FAERS Safety Report 7137914-8 (Version None)
Quarter: 2010Q4

REPORT INFORMATION
  Report Type: 
  Country: None (occurrence: None)
  Receive Date: 20101103
  Receipt Date: 20100616
  Transmission Date: 20110411
  Serious: Yes (Other)
  Sender: FDA-Public Use
  Company Number: US-WYE-H16072910

PATIENT
  Sex: Female
  Weight: 89.89 kg

DRUGS (7)
  1. EFFEXOR XR [Suspect]
     Indication: DEPRESSION
     Dosage: 225 MG 1X PER 1 DAY
     Dates: start: 20050101
  2. CETIRIZINE HCL [Concomitant]
  3. SPIRONOLACTONE [Concomitant]
  4. MULTIVITAMINS, PLAIN (MULTIVITAMINS, PLAIN) [Concomitant]
  5. CALCIUM (CALCIUM) [Concomitant]
  6. FISH (FISH OIL) [Concomitant]
  7. VITMIN B-COMPLEX (VITAMIN B-COMPLEX) [Concomitant]

REACTIONS (5)
  - DRUG WITHDRAWAL SYNDROME [None]
  - MENTAL IMPAIRMENT [None]
  - MIGRAINE [None]
  - NAUSEA [None]
  - VOMITING [None]
